FAERS Safety Report 8127829-0 (Version None)
Quarter: 2012Q1

REPORT INFORMATION
  Report Type: 
  Country: None (occurrence: None)
  Receive Date: 20120210
  Receipt Date: 20110712
  Transmission Date: 20120608
  Serious: No
  Sender: FDA-Public Use
  Company Number: US-GLAXOSMITHKLINE-A0936494A

PATIENT
  Age: 52 Year
  Sex: Male

DRUGS (5)
  1. KLONOPIN [Concomitant]
  2. PAXIL [Suspect]
     Indication: PANIC DISORDER
     Dosage: 80MG PER DAY
     Route: 048
     Dates: start: 20100101, end: 20110701
  3. TRAMADOL HCL [Concomitant]
  4. SEROQUEL XR [Suspect]
     Dosage: 600MG PER DAY
  5. AMBIEN [Concomitant]

REACTIONS (5)
  - ANXIETY [None]
  - DECREASED APPETITE [None]
  - HYPERHIDROSIS [None]
  - TREMOR [None]
  - CONFUSIONAL STATE [None]
